FAERS Safety Report 24016444 (Version 2)
Quarter: 2025Q3

REPORT INFORMATION
  Report Type: Report from Study
  Country: CA (occurrence: CA)
  Receive Date: 20240626
  Receipt Date: 20250718
  Transmission Date: 20251021
  Serious: Yes (Hospitalization, Other)
  Sender: SANDOZ
  Company Number: CA-SANDOZ-SDZ2023CA036359

PATIENT
  Age: 82 Year
  Sex: Female

DRUGS (2)
  1. HYRIMOZ [Suspect]
     Active Substance: ADALIMUMAB-ADAZ
     Indication: Psoriatic arthropathy
     Dosage: 40MG SC Q2SEMAINES;EVERY TWO WEEKS
     Route: 058
     Dates: start: 20220311
  2. HYRIMOZ [Suspect]
     Active Substance: ADALIMUMAB-ADAZ
     Route: 058
     Dates: start: 20240130

REACTIONS (4)
  - Urinary tract infection [Unknown]
  - Cystitis [Unknown]
  - Therapy interrupted [Unknown]
  - Dysuria [Unknown]

NARRATIVE: CASE EVENT DATE: 20250712
